FAERS Safety Report 8955954 (Version 1)
Quarter: 2012Q4

REPORT INFORMATION
  Report Type: 
  Country: FR (occurrence: BR)
  Receive Date: 20121210
  Receipt Date: 20121210
  Transmission Date: 20130627
  Serious: Yes (Life-Threatening, Hospitalization)
  Sender: FDA-Public Use
  Company Number: FR-009507513-1212BRA003246

PATIENT
  Age: 48 Year
  Sex: Female

DRUGS (6)
  1. MK-0431 [Suspect]
     Indication: TYPE 2 DIABETES MELLITUS
     Dosage: 100 mg, qd
     Route: 048
     Dates: start: 20100420
  2. LOSARTAN POTASSIUM [Suspect]
     Dosage: UNK
     Dates: start: 2008
  3. HYDROCHLOROTHIAZIDE [Concomitant]
     Dosage: UNK
     Dates: start: 2008
  4. ASPIRINE [Concomitant]
     Dosage: UNK
     Dates: start: 2008
  5. PENTOXIFYLLINE [Concomitant]
     Dosage: UNK
     Dates: start: 2008
  6. METFORMIN HYDROCHLORIDE [Concomitant]
     Dosage: UNK
     Dates: start: 200102

REACTIONS (3)
  - Abscess limb [Recovered/Resolved]
  - Gastrointestinal haemorrhage [Unknown]
  - Anaemia [Recovered/Resolved]
